FAERS Safety Report 4965788-X (Version None)
Quarter: 2006Q2

REPORT INFORMATION
  Report Type: 
  Country: None (occurrence: None)
  Receive Date: 20060406
  Receipt Date: 20060406
  Transmission Date: 20061013
  Serious: Yes (Death)
  Sender: FDA-Public Use
  Company Number: None

PATIENT
  Age: 85 Year
  Sex: Male

DRUGS (1)
  1. CELEBREX [Suspect]
     Indication: INTERVERTEBRAL DISC DISORDER
     Dosage: 1 CELEBREX 2 X A DAY
     Dates: start: 20010530, end: 20020213

REACTIONS (1)
  - UPPER GASTROINTESTINAL HAEMORRHAGE [None]
